FAERS Safety Report 24772393 (Version 1)
Quarter: 2024Q4

REPORT INFORMATION
  Report Type: Spontaneous
  Country: US (occurrence: None)
  Receive Date: 20241224
  Receipt Date: 20241224
  Transmission Date: 20250114
  Serious: Yes (Hospitalization, Other)
  Sender: Public
  Company Number: None

PATIENT
  Age: 44 Year
  Sex: Female
  Weight: 67 kg

DRUGS (1)
  1. HYRIMOZ [Suspect]
     Active Substance: ADALIMUMAB-ADAZ
     Indication: Rheumatoid arthritis
     Dosage: 40 MG EVEY 14 DAYS SUBCUTANEOUS?
     Route: 058
     Dates: start: 20241221, end: 20241221

REACTIONS (1)
  - Hepatitis [None]

NARRATIVE: CASE EVENT DATE: 20241222
